FAERS Safety Report 14940794 (Version 1)
Quarter: 2018Q2

REPORT INFORMATION
  Report Type: Spontaneous
  Country: CN (occurrence: CN)
  Receive Date: 20180525
  Receipt Date: 20180525
  Transmission Date: 20180711
  Serious: Yes (Other)
  Sender: FDA-Public Use
  Company Number: CN-MYLANLABS-2018M1034269

PATIENT
  Age: 50 Year
  Sex: Female

DRUGS (7)
  1. ETANERCEPT [Suspect]
     Active Substance: ETANERCEPT
     Indication: BEHCET^S SYNDROME
     Dosage: 25 MG, BIWEEKLY
     Route: 065
     Dates: start: 201207
  2. ADALIMUMAB [Suspect]
     Active Substance: ADALIMUMAB
     Indication: BEHCET^S SYNDROME
     Route: 065
     Dates: start: 201207
  3. PREDNISONE. [Concomitant]
     Active Substance: PREDNISONE
     Indication: BEHCET^S SYNDROME
     Route: 065
     Dates: start: 201207
  4. THALIDOMIDE [Concomitant]
     Active Substance: THALIDOMIDE
     Indication: BEHCET^S SYNDROME
     Route: 065
     Dates: start: 201207
  5. HYDROXYCHLOROQUINE [Concomitant]
     Active Substance: HYDROXYCHLOROQUINE
     Indication: BEHCET^S SYNDROME
     Route: 065
     Dates: start: 201207
  6. MYCOPHENOLATE MOFETIL. [Suspect]
     Active Substance: MYCOPHENOLATE MOFETIL
     Indication: BEHCET^S SYNDROME
     Route: 065
     Dates: start: 201301
  7. PREDNISONE. [Concomitant]
     Active Substance: PREDNISONE
     Route: 065
     Dates: start: 201301

REACTIONS (1)
  - Drug ineffective [Unknown]
